FAERS Safety Report 23836211 (Version 1)
Quarter: 2024Q2

REPORT INFORMATION
  Report Type: Report from Study
  Country: GB (occurrence: GB)
  Receive Date: 20240509
  Receipt Date: 20240509
  Transmission Date: 20240716
  Serious: Yes (Death)
  Sender: FDA-Public Use
  Company Number: GB-PFIZER INC-202400103076

PATIENT

DRUGS (3)
  1. DOCETAXEL [Suspect]
     Active Substance: DOCETAXEL\DOCETAXEL ANHYDROUS
     Indication: Head and neck cancer
     Dosage: UNK UNK, CYCLIC
  2. FLUOROURACIL [Suspect]
     Active Substance: FLUOROURACIL
     Indication: Head and neck cancer
     Dosage: UNK UNK, CYCLIC
  3. PLATINUM [Suspect]
     Active Substance: PLATINUM
     Indication: Head and neck cancer
     Dosage: UNK UNK, CYCLIC

REACTIONS (1)
  - Sepsis [Fatal]
